FAERS Safety Report 7986721-2 (Version None)
Quarter: 2011Q4

REPORT INFORMATION
  Report Type: 
  Country: None (occurrence: None)
  Receive Date: 20111216
  Receipt Date: 20110922
  Transmission Date: 20120403
  Serious: No
  Sender: FDA-Public Use
  Company Number: US-BRISTOL-MYERS SQUIBB COMPANY-15985211

PATIENT

DRUGS (2)
  1. ABILIFY [Suspect]
  2. TRAZODONE HCL [Suspect]

REACTIONS (2)
  - MUSCLE TWITCHING [None]
  - HEAD TITUBATION [None]
